FAERS Safety Report 4381060-3 (Version None)
Quarter: 2004Q2

REPORT INFORMATION
  Report Type: 
  Country: None (occurrence: None)
  Receive Date: 20040601
  Receipt Date: 20040225
  Transmission Date: 20050107
  Serious: No
  Sender: FDA-Public Use
  Company Number: FABR-10492

PATIENT
  Age: 50 Year
  Sex: Female
  Weight: 59 kg

DRUGS (2)
  1. FABRAZYME [Suspect]
     Indication: FABRY'S DISEASE
     Dosage: 70 MG, IV
     Route: 042
     Dates: start: 20031003
  2. LOTENSIN [Concomitant]

REACTIONS (2)
  - ERYTHEMA [None]
  - INFLAMMATION LOCALISED [None]
